FAERS Safety Report 15067288 (Version 1)
Quarter: 2018Q2

REPORT INFORMATION
  Report Type: Spontaneous
  Country: US (occurrence: US)
  Receive Date: 20180626
  Receipt Date: 20180626
  Transmission Date: 20180711
  Serious: No
  Sender: FDA-Public Use
  Company Number: PHEH2018US024850

PATIENT
  Sex: Male

DRUGS (2)
  1. AFINITOR [Suspect]
     Active Substance: EVEROLIMUS
     Indication: FOLLICULAR THYROID CANCER
     Dosage: 5 MG, QD
     Route: 048
     Dates: start: 20180220
  2. LENVIMA [Suspect]
     Active Substance: LENVATINIB
     Indication: FOLLICULAR THYROID CANCER
     Dosage: 18 MG, QD
     Route: 048
     Dates: start: 20161013

REACTIONS (1)
  - Product use in unapproved indication [Unknown]
